FAERS Safety Report 20864771 (Version 1)
Quarter: 2022Q2

REPORT INFORMATION
  Report Type: Spontaneous
  Country: US (occurrence: US)
  Receive Date: 20220524
  Receipt Date: 20220524
  Transmission Date: 20220721
  Serious: Yes (Other)
  Sender: FDA-Public Use
  Company Number: US-STRIDES ARCOLAB LIMITED-2021SP030160

PATIENT
  Age: 60 Year
  Sex: Male

DRUGS (4)
  1. CYPROHEPTADINE [Suspect]
     Active Substance: CYPROHEPTADINE
     Indication: Extrapyramidal disorder
     Dosage: UNK
     Route: 065
  2. CYPROHEPTADINE [Suspect]
     Active Substance: CYPROHEPTADINE
     Indication: Serotonin syndrome
  3. LORAZEPAM [Suspect]
     Active Substance: LORAZEPAM
     Indication: Extrapyramidal disorder
     Dosage: UNK
     Route: 065
  4. LORAZEPAM [Suspect]
     Active Substance: LORAZEPAM
     Indication: Serotonin syndrome

REACTIONS (1)
  - Drug ineffective for unapproved indication [Unknown]
